FAERS Safety Report 15518067 (Version 1)
Quarter: 2018Q4

REPORT INFORMATION
  Report Type: Spontaneous
  Country: US (occurrence: US)
  Receive Date: 20181018
  Receipt Date: 20181018
  Transmission Date: 20190205
  Serious: Yes (Death)
  Sender: FDA-Public Use
  Company Number: None

PATIENT
  Age: 74 Year
  Sex: Male
  Weight: 154 kg

DRUGS (3)
  1. XARELTO [Suspect]
     Active Substance: RIVAROXABAN
     Indication: ATRIAL FIBRILLATION
     Route: 048
     Dates: start: 20180611, end: 20180614
  2. LOVENOX [Concomitant]
     Active Substance: ENOXAPARIN SODIUM
     Dates: start: 20180609, end: 20180611
  3. ASPIRIN. [Concomitant]
     Active Substance: ASPIRIN
     Dates: start: 20180609, end: 20180614

REACTIONS (7)
  - International normalised ratio increased [None]
  - Intra-abdominal haemorrhage [None]
  - Abdominal distension [None]
  - General physical health deterioration [None]
  - Haematemesis [None]
  - Cardiac arrest [None]
  - Retroperitoneal haemorrhage [None]

NARRATIVE: CASE EVENT DATE: 20180614
